FAERS Safety Report 14176746 (Version 8)
Quarter: 2022Q3

REPORT INFORMATION
  Report Type: Other
  Country: US (occurrence: None)
  Receive Date: 20171110
  Receipt Date: 20220929
  Transmission Date: 20221027
  Serious: Yes (Other)
  Sender: FDA-Public Use
  Company Number: US-ROCHE-2020547

PATIENT
  Sex: Female
  Weight: 57.204 kg

DRUGS (3)
  1. OCREVUS [Suspect]
     Active Substance: OCRELIZUMAB
     Indication: Relapsing-remitting multiple sclerosis
     Dosage: ON 31/MAR/2017, PRESCRIBED WITH INTRAVENOUS OCRELIZUMAB INFUSION 300 MG O DAY 1 AND THEN 300 MG ON D
     Route: 042
     Dates: start: 201711
  2. OCREVUS [Suspect]
     Active Substance: OCRELIZUMAB
     Indication: Relapsing multiple sclerosis
     Route: 042
     Dates: start: 201701
  3. OCREVUS [Suspect]
     Active Substance: OCRELIZUMAB
     Indication: Progressive multiple sclerosis
     Dosage: 600 MG EVERY 6 MONTHS
     Route: 042
     Dates: start: 20170918

REACTIONS (12)
  - Suicidal ideation [Unknown]
  - Feeling abnormal [Unknown]
  - Oral herpes [Not Recovered/Not Resolved]
  - Gastrointestinal disorder [Unknown]
  - Muscular weakness [Not Recovered/Not Resolved]
  - Oral herpes [Not Recovered/Not Resolved]
  - Cystitis [Not Recovered/Not Resolved]
  - Gait disturbance [Not Recovered/Not Resolved]
  - Cognitive disorder [Not Recovered/Not Resolved]
  - Adenomyosis [Unknown]
  - Cystitis interstitial [Recovered/Resolved]
  - Pruritus [Not Recovered/Not Resolved]

NARRATIVE: CASE EVENT DATE: 20170101
